FAERS Safety Report 18340084 (Version 1)
Quarter: 2020Q4

REPORT INFORMATION
  Report Type: Spontaneous
  Country: DE (occurrence: DE)
  Receive Date: 20201002
  Receipt Date: 20201002
  Transmission Date: 20210113
  Serious: Yes (Hospitalization)
  Sender: FDA-Public Use
  Company Number: DE-JNJFOC-20200951307

PATIENT
  Age: 66 Year
  Sex: Female
  Weight: 83.6 kg

DRUGS (1)
  1. XARELTO [Suspect]
     Active Substance: RIVAROXABAN
     Indication: PULMONARY EMBOLISM
     Dosage: 20 MG, QD
     Route: 048
     Dates: start: 20170410

REACTIONS (1)
  - Cholesteatoma [Recovered/Resolved]

NARRATIVE: CASE EVENT DATE: 20170725
